FAERS Safety Report 12804528 (Version 1)
Quarter: 2016Q4

REPORT INFORMATION
  Report Type: Spontaneous
  Country: US (occurrence: US)
  Receive Date: 20161003
  Receipt Date: 20161003
  Transmission Date: 20170207
  Serious: Yes (Hospitalization, Other)
  Sender: FDA-Public Use
  Company Number: US-ACTELION-A-US2016-142815

PATIENT
  Age: 6 Month
  Sex: Male

DRUGS (2)
  1. OPSUMIT [Suspect]
     Active Substance: MACITENTAN
     Dosage: 10 UNK, UNK
     Route: 048
     Dates: start: 20141112, end: 20150616
  2. OPSUMIT [Suspect]
     Active Substance: MACITENTAN
     Indication: MATERNAL EXPOSURE DURING PREGNANCY
     Dosage: 10 MG, UNK
     Route: 064
     Dates: end: 20150616

REACTIONS (2)
  - Premature baby [Unknown]
  - Maternal exposure during pregnancy [Unknown]
